FAERS Safety Report 8016251-3 (Version None)
Quarter: 2011Q4

REPORT INFORMATION
  Report Type: 
  Country: None (occurrence: None)
  Receive Date: 20111230
  Receipt Date: 20111222
  Transmission Date: 20120403
  Serious: Yes (Hospitalization, Other)
  Sender: FDA-Public Use
  Company Number: US-MERCK-1108USA02950

PATIENT
  Age: 77 Year
  Sex: Female

DRUGS (7)
  1. VITAMINS (UNSPECIFIED) [Concomitant]
     Route: 065
  2. PRILOSEC [Concomitant]
     Indication: DYSPEPSIA
     Route: 065
     Dates: start: 20000101
  3. FOSAMAX [Suspect]
     Route: 048
     Dates: start: 20080101, end: 20100301
  4. CALCIUM (UNSPECIFIED) [Concomitant]
     Route: 065
  5. FOSAMAX [Suspect]
     Indication: OSTEOPOROSIS
     Route: 048
     Dates: start: 20050101
  6. PLAQUENIL [Concomitant]
     Indication: SYSTEMIC LUPUS ERYTHEMATOSUS
     Route: 065
     Dates: start: 20000101
  7. FOSAMAX [Suspect]
     Indication: PROPHYLAXIS
     Route: 048
     Dates: start: 20050101

REACTIONS (14)
  - ARTHRITIS [None]
  - FALL [None]
  - PLEURAL EFFUSION [None]
  - LUNG DISORDER [None]
  - CARDIAC DISORDER [None]
  - ANAEMIA POSTOPERATIVE [None]
  - DYSPNOEA [None]
  - CARDIAC MURMUR [None]
  - FEMUR FRACTURE [None]
  - CORONARY ARTERY DISEASE [None]
  - GASTROOESOPHAGEAL REFLUX DISEASE [None]
  - HYPONATRAEMIA [None]
  - ARRHYTHMIA [None]
  - HYPERTENSION [None]
